FAERS Safety Report 7236353-9 (Version None)
Quarter: 2011Q1

REPORT INFORMATION
  Report Type: 
  Country: None (occurrence: None)
  Receive Date: 20110120
  Receipt Date: 20101230
  Transmission Date: 20110831
  Serious: Yes (Hospitalization, Other)
  Sender: FDA-Public Use
  Company Number: GXKR2010DE14270

PATIENT
  Sex: Female
  Weight: 85 kg

DRUGS (3)
  1. MTX HEXAL [Suspect]
     Dosage: 10 MG, QW
     Route: 058
     Dates: start: 20100701
  2. DELIX [Concomitant]
     Indication: HYPERTENSION
     Dosage: 7.5 MG, TID
     Route: 048
  3. PANTOZOL [Concomitant]
     Dosage: 20 MG, UNK
     Route: 048

REACTIONS (2)
  - PSYCHOTIC DISORDER [None]
  - AFFECTIVE DISORDER [None]
